FAERS Safety Report 5077052-1 (Version None)
Quarter: 2006Q3

REPORT INFORMATION
  Report Type: 
  Country: None (occurrence: None)
  Receive Date: 20060810
  Receipt Date: 20030314
  Transmission Date: 20061208
  Serious: No
  Sender: FDA-Public Use
  Company Number: US-GLAXOSMITHKLINE-A0400560A

PATIENT
  Age: 80 Year
  Sex: Female

DRUGS (6)
  1. PAXIL [Suspect]
     Indication: HYPERTENSION
     Dosage: 20MG SEE DOSAGE TEXT
     Route: 048
     Dates: start: 20000101, end: 20030101
  2. XANAX [Concomitant]
  3. DIOVAN [Concomitant]
  4. HYDRODIURIL [Concomitant]
  5. ASPIRIN [Concomitant]
  6. LOPRESSOR [Concomitant]

REACTIONS (5)
  - DRUG INEFFECTIVE FOR UNAPPROVED INDICATION [None]
  - FLATULENCE [None]
  - ILL-DEFINED DISORDER [None]
  - NIGHT SWEATS [None]
  - THERAPEUTIC RESPONSE UNEXPECTED [None]
